FAERS Safety Report 26122781 (Version 1)
Quarter: 2025Q4

REPORT INFORMATION
  Report Type: Spontaneous
  Country: US (occurrence: US)
  Receive Date: 20251204
  Receipt Date: 20251204
  Transmission Date: 20260117
  Serious: No
  Sender: MYLAN
  Company Number: US-MYLANLABS-2025M1100587

PATIENT

DRUGS (1)
  1. RYZUMVI [Suspect]
     Active Substance: PHENTOLAMINE MESYLATE
     Indication: Ill-defined disorder
     Dosage: UNK

REACTIONS (3)
  - Treatment noncompliance [Unknown]
  - Therapeutic product effect incomplete [Unknown]
  - Off label use [Unknown]
